FAERS Safety Report 22587161 (Version 2)
Quarter: 2023Q2

REPORT INFORMATION
  Report Type: Spontaneous
  Country: JP (occurrence: JP)
  Receive Date: 20230612
  Receipt Date: 20230612
  Transmission Date: 20230721
  Serious: Yes (Other)
  Sender: FDA-Public Use
  Company Number: JP-AMGEN-JPNSP2023097103

PATIENT
  Sex: Male
  Weight: 44 kg

DRUGS (1)
  1. BLINCYTO [Suspect]
     Active Substance: BLINATUMOMAB
     Indication: B precursor type acute leukaemia
     Dosage: UNK UNK, QD
     Route: 042
     Dates: start: 20230526, end: 20230601

REACTIONS (1)
  - Oral neoplasm [Not Recovered/Not Resolved]

NARRATIVE: CASE EVENT DATE: 20230601
